FAERS Safety Report 10391121 (Version 4)
Quarter: 2015Q1

REPORT INFORMATION
  Report Type: Report from Study
  Country: JP (occurrence: JP)
  Receive Date: 20140818
  Receipt Date: 20150218
  Transmission Date: 20150720
  Serious: No
  Sender: FDA-Public Use
  Company Number: JP-GLAXOSMITHKLINE-B1024070A

PATIENT
  Age: 58 Year
  Sex: Female

DRUGS (11)
  1. SYMMETREL [Concomitant]
     Active Substance: AMANTADINE HYDROCHLORIDE
     Indication: PARKINSON^S DISEASE
     Dosage: 150 MG, 1D
     Dates: start: 20090512
  2. FP [Concomitant]
     Active Substance: SELEGILINE HYDROCHLORIDE
     Indication: PARKINSON^S DISEASE
     Dosage: 2.5 MG, 1D
     Dates: start: 20100727
  3. MENESIT [Concomitant]
     Active Substance: CARBIDOPA\LEVODOPA
     Indication: PARKINSON^S DISEASE
     Dosage: 600 MG, 1D
     Dates: start: 20140218
  4. NAUZELIN [Concomitant]
     Active Substance: DOMPERIDONE
     Dosage: UNK
     Dates: start: 20120828
  5. SOLANAX [Concomitant]
     Active Substance: ALPRAZOLAM
     Dosage: UNK
     Dates: start: 20131029
  6. ROPINIROLE HYDROCHLORIDE. [Suspect]
     Active Substance: ROPINIROLE HYDROCHLORIDE
     Indication: PARKINSON^S DISEASE
     Dosage: 8 MG, QD
     Route: 048
     Dates: start: 20131029, end: 20140419
  7. EC-DOPARL [Concomitant]
     Active Substance: BENSERAZIDE HYDROCHLORIDE\LEVODOPA
     Indication: PARKINSON^S DISEASE
     Dosage: 450 MG, 1D
     Dates: start: 20110726, end: 20140217
  8. AMANTADINE HYDROCHLORIDE. [Concomitant]
     Active Substance: AMANTADINE HYDROCHLORIDE
     Dosage: 50 MG, TID
  9. BIOFERMIN [Concomitant]
     Active Substance: BACILLUS SUBTILIS\LACTOBACILLUS ACIDOPHILUS\STREPTOCOCCUS FAECAIS
     Dosage: UNK
     Dates: start: 20130827, end: 20131223
  10. DEPAS [Concomitant]
     Active Substance: ETIZOLAM
     Dosage: UNK
     Dates: start: 20131029
  11. EC-DOPARL [Concomitant]
     Active Substance: BENSERAZIDE HYDROCHLORIDE\LEVODOPA
     Dosage: 150 MG, TID
     Route: 048
     Dates: start: 20110726, end: 20140217

REACTIONS (4)
  - Bradykinesia [Unknown]
  - Dystonia [Unknown]
  - Muscle rigidity [Unknown]
  - Muscular weakness [Recovering/Resolving]

NARRATIVE: CASE EVENT DATE: 201401
